FAERS Safety Report 8220966-1 (Version None)
Quarter: 2012Q1

REPORT INFORMATION
  Report Type: 
  Country: None (occurrence: None)
  Receive Date: 20120320
  Receipt Date: 20120308
  Transmission Date: 20120608
  Serious: Yes (Hospitalization)
  Sender: FDA-Public Use
  Company Number: FR-SANOFI-AVENTIS-2012SA015466

PATIENT
  Age: 61 Year
  Sex: Male
  Weight: 101 kg

DRUGS (4)
  1. PREDNISONE [Suspect]
     Indication: PROSTATE CANCER METASTATIC
     Route: 048
     Dates: start: 20120105, end: 20120225
  2. ACETAMINOPHEN [Concomitant]
     Route: 048
     Dates: start: 20120101
  3. CABAZITAXEL [Suspect]
     Route: 042
     Dates: start: 20120216, end: 20120216
  4. CABAZITAXEL [Suspect]
     Indication: PROSTATE CANCER METASTATIC
     Route: 042
     Dates: start: 20120105, end: 20120105

REACTIONS (1)
  - URINARY RETENTION [None]
